FAERS Safety Report 11475832 (Version 2)
Quarter: 2015Q4

REPORT INFORMATION
  Report Type: Report from Study
  Country: US (occurrence: US)
  Receive Date: 20150909
  Receipt Date: 20151028
  Transmission Date: 20160304
  Serious: Yes (Other)
  Sender: FDA-Public Use
  Company Number: US-AMGEN-USASP2015083333

PATIENT
  Age: 47 Year
  Sex: Male

DRUGS (1)
  1. BLINCYTO [Suspect]
     Active Substance: BLINATUMOMAB
     Indication: ACUTE LYMPHOCYTIC LEUKAEMIA
     Dosage: 65MCG OVER 48 HOURS
     Route: 065

REACTIONS (17)
  - Dry mouth [Unknown]
  - Lymphadenopathy [Unknown]
  - Weight decreased [Unknown]
  - Platelet count decreased [Unknown]
  - Neuropathy peripheral [Unknown]
  - Device issue [Unknown]
  - Gamma-glutamyltransferase increased [Unknown]
  - Rash generalised [Not Recovered/Not Resolved]
  - Pain in jaw [Unknown]
  - Fatigue [Unknown]
  - Graft versus host disease in skin [Unknown]
  - Rash pruritic [Unknown]
  - Pain in extremity [Unknown]
  - Blood lactate dehydrogenase decreased [Unknown]
  - Overdose [Unknown]
  - Rhinorrhoea [Unknown]
  - Blood sodium decreased [Unknown]

NARRATIVE: CASE EVENT DATE: 20151014
